FAERS Safety Report 4351182-1 (Version None)
Quarter: 2004Q2

REPORT INFORMATION
  Report Type: 
  Country: None (occurrence: None)
  Receive Date: 20040428
  Receipt Date: 20031208
  Transmission Date: 20050107
  Serious: Yes (Other)
  Sender: FDA-Public Use
  Company Number: US-JNJFOC-20031201811

PATIENT
  Age: 35 Year
  Sex: Male
  Weight: 99.7913 kg

DRUGS (3)
  1. ULTRAM [Suspect]
     Indication: PAIN IN EXTREMITY
     Dosage: 50 MG, ORAL
     Route: 048
  2. ASPIRIN [Concomitant]
  3. MULTIVITAMIN [Concomitant]

REACTIONS (1)
  - CONVULSION [None]
